FAERS Safety Report 8619469-1 (Version None)
Quarter: 2012Q3

REPORT INFORMATION
  Report Type: 
  Country: None (occurrence: None)
  Receive Date: 20120824
  Receipt Date: 20120810
  Transmission Date: 20120928
  Serious: Yes (Other)
  Sender: FDA-Public Use
  Company Number: JP-VERTEX PHARMACEUTICAL INC.-AE-2012-006310

PATIENT
  Age: 71 Year
  Sex: Male

DRUGS (12)
  1. REBETOL [Suspect]
     Dosage: 200 MG, UNK
     Route: 048
     Dates: start: 20120329
  2. REBETOL [Suspect]
     Dosage: 400 MG, QOD
     Route: 048
     Dates: start: 20120412, end: 20120802
  3. VX-950 [Suspect]
     Indication: HEPATITIS C
     Dosage: 2250 MG, QD
     Route: 048
     Dates: start: 20120215, end: 20120426
  4. REBETOL [Suspect]
     Indication: HEPATITIS C
     Dosage: 600 MG, QD
     Route: 048
     Dates: start: 20120215, end: 20120227
  5. REBETOL [Suspect]
     Dosage: 200 MG, QOD
     Route: 048
     Dates: start: 20120315, end: 20120328
  6. REBETOL [Suspect]
     Dosage: 200 MG, QD
     Route: 048
     Dates: start: 20120322, end: 20120411
  7. REBETOL [Suspect]
     Dosage: 400 MG, QD
     Route: 048
     Dates: start: 20120228, end: 20120308
  8. LOXONIN [Concomitant]
     Dosage: 60 MG, PRN
     Route: 048
  9. AZULENE-GLUTAMINE [Concomitant]
     Dosage: 0.67 G, QD
     Route: 048
  10. PEGINTRON                          /01543001/ [Suspect]
     Indication: HEPATITIS C
     Dosage: 1.5 A?G/KG, UNK
     Route: 058
     Dates: start: 20120215, end: 20120802
  11. REBETOL [Suspect]
     Dosage: 200 MG, QD
     Route: 048
     Dates: start: 20120309, end: 20120314
  12. URSO                               /00465701/ [Concomitant]
     Dosage: 600 MG, QD
     Route: 048

REACTIONS (2)
  - DRUG ERUPTION [None]
  - ANAEMIA [None]
